FAERS Safety Report 5106782-8 (Version None)
Quarter: 2006Q3

REPORT INFORMATION
  Report Type: 
  Country: None (occurrence: None)
  Receive Date: 20060918
  Receipt Date: 20060908
  Transmission Date: 20061208
  Serious: Yes (Death, Other)
  Sender: FDA-Public Use
  Company Number: JP-JNJFOC-20060802619

PATIENT
  Sex: Male

DRUGS (3)
  1. LEUSTATIN [Suspect]
     Indication: LYMPHOMA
     Route: 042
  2. KYTRIL [Concomitant]
     Indication: LYMPHOMA
     Route: 042
  3. CYANOCOBALAMIN [Concomitant]
     Indication: NEUROPATHY
     Route: 048

REACTIONS (9)
  - BLOOD LACTATE DEHYDROGENASE INCREASED [None]
  - CONDITION AGGRAVATED [None]
  - LOWER LIMB FRACTURE [None]
  - LYMPHADENOPATHY [None]
  - OPEN FRACTURE [None]
  - REFUSAL OF TREATMENT BY PATIENT [None]
  - RENAL FAILURE [None]
  - ROAD TRAFFIC ACCIDENT [None]
  - TUMOUR LYSIS SYNDROME [None]
